FAERS Safety Report 4723436-8 (Version None)
Quarter: 2005Q3

REPORT INFORMATION
  Report Type: 
  Country: None (occurrence: None)
  Receive Date: 20050725
  Receipt Date: 20050722
  Transmission Date: 20060218
  Serious: Yes (Life-Threatening)
  Sender: FDA-Public Use
  Company Number: PHBS2005ES10508

PATIENT
  Age: 52 Year
  Sex: Female

DRUGS (6)
  1. TOFRANIL [Suspect]
     Indication: DEPRESSION
     Dosage: UNK, UNK
     Route: 048
     Dates: start: 20041201, end: 20050130
  2. LEVOTHROID [Concomitant]
     Route: 065
  3. DORKEN [Concomitant]
     Route: 065
  4. ISODIUR [Concomitant]
     Route: 065
  5. VENTOLIN [Concomitant]
     Route: 065
  6. SYMBICORT TURBUHALER [Concomitant]
     Route: 065

REACTIONS (3)
  - EOSINOPHILIA [None]
  - PERICARDITIS [None]
  - PLEURISY [None]
